FAERS Safety Report 4941531-5 (Version None)
Quarter: 2006Q1

REPORT INFORMATION
  Report Type: 
  Country: None (occurrence: None)
  Receive Date: 20060308
  Receipt Date: 20060227
  Transmission Date: 20060701
  Serious: Yes (Other)
  Sender: FDA-Public Use
  Company Number: 2006030309

PATIENT
  Age: 10 Year
  Sex: Male

DRUGS (1)
  1. CETIRIZINE HCL [Suspect]
     Indication: SWELLING FACE
     Dosage: 10 MG (1 D), ORAL
     Route: 048
     Dates: start: 20060203, end: 20060203

REACTIONS (1)
  - ERYTHEMA MULTIFORME [None]
